FAERS Safety Report 10372090 (Version 1)
Quarter: 2014Q3

REPORT INFORMATION
  Report Type: Spontaneous
  Country: CN (occurrence: CN)
  Receive Date: 20140808
  Receipt Date: 20140808
  Transmission Date: 20150326
  Serious: Yes (Other)
  Sender: FDA-Public Use
  Company Number: CN-ASTRAZENECA-2014SE57228

PATIENT
  Age: 29585 Day
  Sex: Male
  Weight: 60 kg

DRUGS (4)
  1. FELODIPINE. [Suspect]
     Active Substance: FELODIPINE
     Indication: CORONARY ARTERY DISEASE
     Route: 048
     Dates: start: 20140228, end: 20140301
  2. ISOSORBIDE MONONITRATE. [Suspect]
     Active Substance: ISOSORBIDE MONONITRATE
     Indication: ANGINA PECTORIS
     Route: 048
     Dates: start: 20140228, end: 20140301
  3. FELODIPINE. [Suspect]
     Active Substance: FELODIPINE
     Indication: HYPERTENSION
     Route: 048
     Dates: start: 20140228, end: 20140301
  4. TELMISARTAN. [Suspect]
     Active Substance: TELMISARTAN
     Indication: HYPERTENSION
     Route: 048
     Dates: start: 20140228, end: 20140301

REACTIONS (4)
  - Chest discomfort [Recovered/Resolved]
  - Insomnia [Recovered/Resolved]
  - Dyspnoea [Recovered/Resolved]
  - Pyrexia [Recovered/Resolved]

NARRATIVE: CASE EVENT DATE: 20140228
